FAERS Safety Report 9613919 (Version 1)
Quarter: 2013Q4

REPORT INFORMATION
  Report Type: Spontaneous
  Country: IT (occurrence: IT)
  Receive Date: 20131010
  Receipt Date: 20131010
  Transmission Date: 20140711
  Serious: Yes (Other)
  Sender: FDA-Public Use
  Company Number: IT-MYLANLABS-2013S1022057

PATIENT
  Age: 59 Year
  Sex: Female

DRUGS (5)
  1. PACLITAXEL [Suspect]
     Indication: BREAST CANCER
     Dosage: CYCLIC
     Dates: start: 20130313, end: 20130530
  2. AVASTIN /01555201/ [Suspect]
     Indication: BREAST CANCER
     Dosage: CYCLIC
     Dates: start: 20130314, end: 20130530
  3. ZANTAC [Concomitant]
     Indication: PRODUCT USED FOR UNKNOWN INDICATION
  4. MEDROL [Concomitant]
     Indication: PRODUCT USED FOR UNKNOWN INDICATION
  5. CETIRIZINE [Concomitant]
     Indication: PRODUCT USED FOR UNKNOWN INDICATION

REACTIONS (1)
  - Palmar-plantar erythrodysaesthesia syndrome [Not Recovered/Not Resolved]
